FAERS Safety Report 6159872-5 (Version None)
Quarter: 2009Q2

REPORT INFORMATION
  Report Type: 
  Country: None (occurrence: None)
  Receive Date: 20090420
  Receipt Date: 20090413
  Transmission Date: 20091009
  Serious: Yes (Hospitalization)
  Sender: FDA-Public Use
  Company Number: PHHY2009JP12941

PATIENT
  Age: 73 Year

DRUGS (13)
  1. COMTAN [Suspect]
     Indication: PARKINSON'S DISEASE
     Dosage: 400 MG
     Route: 048
     Dates: start: 20080313, end: 20090401
  2. MADOPAR [Concomitant]
     Dosage: 4 DF
     Route: 048
  3. MADOPAR [Concomitant]
     Dosage: 1 DF
     Route: 048
  4. CABASER [Concomitant]
     Dosage: 1 DF
     Route: 048
     Dates: end: 20090401
  5. MAGNESIUM OXIDE [Concomitant]
     Dosage: 3 DF
     Route: 048
     Dates: end: 20090401
  6. DEPAS [Concomitant]
     Dosage: 0.5 DF
     Route: 048
     Dates: end: 20090401
  7. DAIO-KANZO-TO [Concomitant]
     Dosage: 1 DF
     Route: 048
     Dates: end: 20090401
  8. EXCELASE [Concomitant]
     Dosage: 2.4 MG
     Route: 048
     Dates: end: 20090401
  9. GASTROM [Concomitant]
     Dosage: 6 G
     Route: 048
     Dates: end: 20090401
  10. MAGMITT [Concomitant]
     Dosage: 660 MG
     Route: 048
     Dates: end: 20090401
  11. LAXOBERON [Concomitant]
     Dosage: 2 DF
     Route: 048
     Dates: end: 20090401
  12. ASPIRIN [Concomitant]
     Dosage: 1 DF
     Route: 048
     Dates: end: 20090401
  13. AMOBAN [Concomitant]
     Dosage: 7.5 MG
     Route: 048
     Dates: end: 20090401

REACTIONS (7)
  - ALANINE AMINOTRANSFERASE INCREASED [None]
  - ASPARTATE AMINOTRANSFERASE INCREASED [None]
  - BLOOD ALKALINE PHOSPHATASE INCREASED [None]
  - BLOOD LACTATE DEHYDROGENASE INCREASED [None]
  - GAMMA-GLUTAMYLTRANSFERASE INCREASED [None]
  - HEPATIC FUNCTION ABNORMAL [None]
  - JAUNDICE [None]
